FAERS Safety Report 18661996 (Version 3)
Quarter: 2021Q2

REPORT INFORMATION
  Report Type: Spontaneous
  Country: US (occurrence: US)
  Receive Date: 20201224
  Receipt Date: 20210414
  Transmission Date: 20210717
  Serious: No
  Sender: FDA-Public Use
  Company Number: US-TAKEDA-2020TUS057089

PATIENT
  Age: 10 Year
  Sex: Male
  Weight: 102 kg

DRUGS (5)
  1. ADDERALL XR [Suspect]
     Active Substance: AMPHETAMINE ASPARTATE\AMPHETAMINE SULFATE\DEXTROAMPHETAMINE SACCHARATE\DEXTROAMPHETAMINE SULFATE
     Indication: ATTENTION DEFICIT HYPERACTIVITY DISORDER
     Dosage: 5 MILLIGRAM, QD
     Route: 048
     Dates: start: 20171216
  2. LURIDE [Concomitant]
     Active Substance: SODIUM FLUORIDE
     Dosage: 1 MILLIGRAM, QD
     Route: 048
  3. ADDERALL XR [Suspect]
     Active Substance: AMPHETAMINE ASPARTATE\AMPHETAMINE SULFATE\DEXTROAMPHETAMINE SACCHARATE\DEXTROAMPHETAMINE SULFATE
     Dosage: 5 MILLIGRAM, EVERY MORNING
     Route: 048
     Dates: start: 20201201, end: 20201204
  4. ADDERALL XR [Suspect]
     Active Substance: AMPHETAMINE ASPARTATE\AMPHETAMINE SULFATE\DEXTROAMPHETAMINE SACCHARATE\DEXTROAMPHETAMINE SULFATE
     Dosage: 5 MILLIGRAM, QD
     Route: 048
     Dates: start: 20171206
  5. ADDERALL XR [Suspect]
     Active Substance: AMPHETAMINE ASPARTATE\AMPHETAMINE SULFATE\DEXTROAMPHETAMINE SACCHARATE\DEXTROAMPHETAMINE SULFATE
     Dosage: 5 MILLIGRAM, QD
     Route: 048
     Dates: start: 20201205, end: 20201206

REACTIONS (12)
  - Dysarthria [Unknown]
  - Irritability [Unknown]
  - Imperception [Unknown]
  - Confusional state [Recovered/Resolved]
  - Heart rate decreased [Unknown]
  - Aggression [Recovered/Resolved]
  - Gait disturbance [Unknown]
  - Swollen tongue [Unknown]
  - Pupillary disorder [Recovered/Resolved]
  - Abnormal behaviour [Recovered/Resolved]
  - Condition aggravated [Unknown]
  - Ocular hyperaemia [Unknown]

NARRATIVE: CASE EVENT DATE: 20201204
